FAERS Safety Report 23021293 (Version 2)
Quarter: 2023Q4

REPORT INFORMATION
  Report Type: Spontaneous
  Country: PR (occurrence: PR)
  Receive Date: 20231003
  Receipt Date: 20231113
  Transmission Date: 20240110
  Serious: No
  Sender: FDA-Public Use
  Company Number: PR-PFIZER INC-PV202300153833

PATIENT
  Age: 10 Year
  Sex: Male

DRUGS (1)
  1. GENOTROPIN [Suspect]
     Active Substance: SOMATROPIN
     Dosage: 1 MG
     Dates: start: 202305

REACTIONS (1)
  - Device mechanical issue [Unknown]
